FAERS Safety Report 7484016-7 (Version None)
Quarter: 2011Q2

REPORT INFORMATION
  Report Type: 
  Country: None (occurrence: None)
  Receive Date: 20110509
  Receipt Date: 20110426
  Transmission Date: 20111010
  Serious: Yes (Life-Threatening, Hospitalization, Disabling)
  Sender: FDA-Public Use
  Company Number: 883668

PATIENT
  Age: 67 Year
  Sex: Male

DRUGS (3)
  1. OXALIPLATIN [Suspect]
     Indication: RECTAL CANCER
     Dosage: INTRAVENOUS (NOT OTHERWISE SPECIFIED)
     Route: 042
  2. CAPECITABINE [Suspect]
     Indication: RECTAL CANCER
     Dosage: ORAL
     Route: 048
  3. AVASTIN [Suspect]
     Indication: RECTAL CANCER
     Dosage: INTRAVNEOUS (NOT OTHERWISE SPECIFIED)
     Route: 042

REACTIONS (3)
  - ABDOMINAL PAIN UPPER [None]
  - PERITONITIS [None]
  - RECTAL PERFORATION [None]
